FAERS Safety Report 25750527 (Version 1)
Quarter: 2025Q3

REPORT INFORMATION
  Report Type: Report from Study
  Country: PH (occurrence: PH)
  Receive Date: 20250902
  Receipt Date: 20250902
  Transmission Date: 20251021
  Serious: Yes (Death)
  Sender: OTSUKA
  Company Number: PH-MMM-Otsuka-0JSW56RD

PATIENT
  Sex: Female

DRUGS (1)
  1. TOLVAPTAN [Suspect]
     Active Substance: TOLVAPTAN
     Indication: Blood sodium decreased
     Dosage: 0.5 DF, TIW (1/2 TABLET ONCE A DAY EVERY MONDAY, WEDNESDAY AND FRIDAY)
     Route: 048
     Dates: start: 202409

REACTIONS (1)
  - Septic shock [Fatal]
